FAERS Safety Report 8060439-2 (Version None)
Quarter: 2012Q1

REPORT INFORMATION
  Report Type: 
  Country: None (occurrence: None)
  Receive Date: 20120120
  Receipt Date: 20111104
  Transmission Date: 20120608
  Serious: Yes (Hospitalization)
  Sender: FDA-Public Use
  Company Number: FR-GLAXOSMITHKLINE-B0761609A

PATIENT
  Sex: Female
  Weight: 45 kg

DRUGS (6)
  1. MOLSIDOMINE [Concomitant]
     Dosage: 4MG PER DAY
     Route: 048
  2. ARIXTRA [Suspect]
     Indication: DEEP VEIN THROMBOSIS
     Dosage: 7.5MG PER DAY
     Route: 058
     Dates: start: 20111002, end: 20111008
  3. SIMVASTATIN [Concomitant]
     Dosage: 20MG PER DAY
     Route: 048
  4. PERINDOPRIL ERBUMINE [Concomitant]
     Dosage: 5MG PER DAY
     Route: 048
  5. VASTAREL [Concomitant]
     Dosage: 70MG PER DAY
     Route: 048
  6. BISOPROLOL FUMARATE [Concomitant]
     Dosage: 1.25MG PER DAY
     Route: 048

REACTIONS (4)
  - ANAEMIA [None]
  - HAEMORRHAGE [None]
  - PLATELET COUNT DECREASED [None]
  - HAEMATOMA [None]
